FAERS Safety Report 17396169 (Version 3)
Quarter: 2020Q4

REPORT INFORMATION
  Report Type: Report from Study
  Country: GB (occurrence: GB)
  Receive Date: 20200210
  Receipt Date: 20201110
  Transmission Date: 20210113
  Serious: Yes (Other)
  Sender: FDA-Public Use
  Company Number: GB-PFIZER INC-2020045723

PATIENT

DRUGS (34)
  1. GEMTUZUMAB OZOGAMICIN [Suspect]
     Active Substance: GEMTUZUMAB OZOGAMICIN
     Indication: ACUTE MYELOID LEUKAEMIA
     Dosage: 5 MG, 1 DOSE(OTHER)
     Route: 042
     Dates: start: 20191227, end: 20191227
  2. PARACETAMOL [Concomitant]
     Active Substance: ACETAMINOPHEN
     Indication: PYREXIA
     Dosage: 1 G, AS NEEDED
     Dates: start: 20191218
  3. PARACETAMOL [Concomitant]
     Active Substance: ACETAMINOPHEN
     Indication: PAIN
  4. SALBUTAMOL [Concomitant]
     Active Substance: ALBUTEROL
     Indication: WHEEZING
     Dosage: 2 DF, DAILY (2 PUFFS)
     Dates: end: 20200120
  5. VANCOMYCIN [Concomitant]
     Active Substance: VANCOMYCIN
     Indication: BLOOD CULTURE
     Dosage: 700 MG, DAILY
     Dates: start: 20200117, end: 20200119
  6. COTRIMOXAZOL [Concomitant]
     Active Substance: SULFAMETHOXAZOLE\TRIMETHOPRIM
     Indication: PROPHYLAXIS
     Dosage: 480 MG, UNK (OTHER) BD ON SATUREDAYS AND SUNDAYS
     Dates: start: 20191221
  7. ACICLOVIR [Concomitant]
     Active Substance: ACYCLOVIR
     Indication: ULCER
     Dosage: 900 MG, 3X/DAY
     Dates: start: 20200121
  8. BACTROBAN [Concomitant]
     Active Substance: MUPIROCIN\MUPIROCIN CALCIUM
     Indication: RHINITIS
     Dosage: UNK UNK, 3X/DAY
     Route: 061
     Dates: start: 20200115
  9. PREGABALIN. [Concomitant]
     Active Substance: PREGABALIN
     Dosage: 100 MG, 2X/DAY
     Dates: start: 20200122
  10. NORETHISTERON [Concomitant]
     Active Substance: NORETHINDRONE
     Dosage: 10 MG, 2X/DAY
     Dates: start: 20200116
  11. CHLORHEXIDIN [CHLORHEXIDINE] [Concomitant]
     Indication: PROPHYLAXIS
     Dosage: 10 ML, 2X/DAY
     Dates: start: 20200104
  12. MEROPENEM. [Concomitant]
     Active Substance: MEROPENEM
     Indication: SEPSIS
     Dosage: 2 G, 3X/DAY
     Dates: start: 20200124
  13. MITOXANTRONE HCL [Suspect]
     Active Substance: MITOXANTRONE HYDROCHLORIDE
     Dosage: 23 MG/M2, 1X/DAY
     Route: 042
     Dates: start: 20191224, end: 20191227
  14. MOVICOL [Concomitant]
     Active Substance: POLYETHYLENE GLYCOL 3350\POTASSIUM CHLORIDE\SODIUM BICARBONATE\SODIUM CHLORIDE
     Indication: CONSTIPATION
     Dosage: 1 DF, 2X/DAY (1 SACHET)
     Dates: start: 20200116, end: 20200121
  15. CLONIDINE. [Concomitant]
     Active Substance: CLONIDINE
     Indication: PAIN
     Dosage: 5 MG, UNK (OTHER)
     Dates: start: 20200106
  16. HYOSCINE BUTYLBROMIDE [Concomitant]
     Active Substance: BUTYLSCOPOLAMINE BROMIDE
     Indication: ABDOMINAL PAIN
     Dosage: 10 MG, 3X/DAY
     Dates: start: 20191227
  17. TAZOCIN [Concomitant]
     Active Substance: PIPERACILLIN SODIUM\TAZOBACTAM SODIUM
     Indication: VASCULAR DEVICE INFECTION
     Dosage: 4.5 G, DAILY
     Dates: start: 20200110, end: 20200123
  18. SUCRALFATE. [Concomitant]
     Active Substance: SUCRALFATE
     Dosage: 500 MG, DAILY
     Dates: start: 20200114
  19. PHOSPHATE SANDOZ [Concomitant]
     Active Substance: SODIUM PHOSPHATE, MONOBASIC, ANHYDROUS
     Indication: HYPOPHOSPHATAEMIA
     Dosage: 1 DF, 2X/DAY
     Dates: start: 20200119, end: 20200123
  20. ONDANSETRAN [Concomitant]
     Active Substance: ONDANSETRON HYDROCHLORIDE
     Indication: ANTIEMETIC SUPPORTIVE CARE
     Dosage: 8 MG, 3X/DAY
     Dates: start: 20191227
  21. CASPOFUNGIN [Concomitant]
     Active Substance: CASPOFUNGIN
     Indication: SYSTEMIC CANDIDA
     Dosage: 70 MG, DAILY
     Dates: start: 20200111
  22. LABETALOL [Concomitant]
     Active Substance: LABETALOL\LABETALOL HYDROCHLORIDE
     Indication: HYPERTENSION
     Dosage: 50 MG, AS NEEDED
     Dates: start: 20200104
  23. HYDROCORTISONE. [Concomitant]
     Active Substance: HYDROCORTISONE
     Indication: HYPERSENSITIVITY
     Dosage: 100 MG, AS NEEDED
     Dates: start: 20191226
  24. NIFEDIPINE. [Concomitant]
     Active Substance: NIFEDIPINE
     Indication: HYPERTENSION
     Dosage: 30 MG, 3X/DAY
     Dates: start: 20200116
  25. GELCLAIR [Concomitant]
     Indication: MUCOSAL INFLAMMATION
     Dosage: UNK UNK, 2X/DAY
     Route: 061
     Dates: start: 20200104
  26. OMEPRAZOLE. [Concomitant]
     Active Substance: OMEPRAZOLE
     Dosage: 20 MG, DAILY
     Route: 048
     Dates: start: 20200116
  27. METOCLOPRAMIDE. [Concomitant]
     Active Substance: METOCLOPRAMIDE
     Indication: ANTIEMETIC SUPPORTIVE CARE
     Dosage: 10 MG, 3X/DAY
     Dates: start: 20191225
  28. VANCOMYCIN [Concomitant]
     Active Substance: VANCOMYCIN
     Dosage: 850 MG, UNK
     Dates: start: 20200121, end: 20200127
  29. CHLORPHENAMINE [Concomitant]
     Active Substance: CHLORPHENIRAMINE MALEATE
     Indication: HYPERSENSITIVITY
     Dosage: 5 MG, AS NEEDED
     Dates: start: 20191218
  30. DIFFLAM [Concomitant]
     Active Substance: BENZYDAMINE HYDROCHLORIDE
     Dosage: 15 ML, 2X/DAY
     Dates: start: 20200107
  31. VANCOMYCIN [Concomitant]
     Active Substance: VANCOMYCIN
     Dosage: 770 MG, DAILY
     Dates: start: 20200119, end: 20200121
  32. OMEPRAZOLE. [Concomitant]
     Active Substance: OMEPRAZOLE
     Dosage: 40 MG, DAILY
     Route: 042
     Dates: start: 20200106, end: 20200115
  33. ACICLOVIR [Concomitant]
     Active Substance: ACYCLOVIR
     Indication: HERPES SIMPLEX
     Dosage: 720 MG, 2X/DAY
     Dates: start: 20200116, end: 20200117
  34. ACICLOVIR [Concomitant]
     Active Substance: ACYCLOVIR
     Indication: MUCOSAL INFLAMMATION

REACTIONS (13)
  - Vomiting [Not Recovered/Not Resolved]
  - Oesophagitis [Not Recovered/Not Resolved]
  - Mucosal inflammation [Not Recovered/Not Resolved]
  - Epistaxis [Not Recovered/Not Resolved]
  - Febrile neutropenia [Not Recovered/Not Resolved]
  - Device related infection [Not Recovered/Not Resolved]
  - Hypophosphataemia [Not Recovered/Not Resolved]
  - Hypertension [Not Recovered/Not Resolved]
  - Oesophageal pain [Not Recovered/Not Resolved]
  - Oesophageal ulcer [Not Recovered/Not Resolved]
  - Platelet count decreased [Not Recovered/Not Resolved]
  - Non-cardiac chest pain [Not Recovered/Not Resolved]
  - Anaemia [Not Recovered/Not Resolved]

NARRATIVE: CASE EVENT DATE: 20200124
